FAERS Safety Report 7017636-4 (Version None)
Quarter: 2010Q3

REPORT INFORMATION
  Report Type: 
  Country: None (occurrence: None)
  Receive Date: 20100928
  Receipt Date: 20100922
  Transmission Date: 20110219
  Serious: Yes (Other)
  Sender: FDA-Public Use
  Company Number: US-PFIZER INC-2010120998

PATIENT
  Age: 49 Year
  Sex: Male

DRUGS (3)
  1. GLIPIZIDE [Suspect]
     Dosage: TWICE A DAY
  2. METFORMIN HCL [Suspect]
     Dosage: 1000 MG, 2X/DAY
  3. LANTUS [Concomitant]
     Dosage: 70 UNITS

REACTIONS (1)
  - LIVER INJURY [None]
